FAERS Safety Report 9956143 (Version 1)
Quarter: 2014Q1

REPORT INFORMATION
  Report Type: Report from Study
  Country: US (occurrence: US)
  Receive Date: 20140304
  Receipt Date: 20140304
  Transmission Date: 20141002
  Serious: No
  Sender: FDA-Public Use
  Company Number: US-ABBVIE-13P-163-1087363-00

PATIENT
  Age: 59 Year
  Sex: Female
  Weight: 77.63 kg

DRUGS (19)
  1. HUMIRA [Suspect]
     Indication: ANKYLOSING SPONDYLITIS
     Route: 058
     Dates: start: 20120111
  2. LEVEMIR [Concomitant]
     Indication: TYPE 1 DIABETES MELLITUS
  3. STARLIX [Concomitant]
     Indication: TYPE 2 DIABETES MELLITUS
  4. VIROPTIC DROPS [Concomitant]
     Indication: HERPES OPHTHALMIC
  5. LUMIGAN EYE DROPS [Concomitant]
     Indication: GLAUCOMA
  6. UNKNOWN EYE DROPS [Concomitant]
     Indication: MACULAR DEGENERATION
  7. LACTOBACILLUS ACIDOPHILUS [Concomitant]
     Indication: IRRITABLE BOWEL SYNDROME
  8. CLOZARIL [Concomitant]
     Indication: BIPOLAR DISORDER
  9. RISPERDAL [Concomitant]
     Indication: BIPOLAR DISORDER
  10. LEXAPRO [Concomitant]
     Indication: DEPRESSION
  11. XANAX [Concomitant]
     Indication: ANXIETY DISORDER
  12. TRAZODONE [Concomitant]
     Indication: DEPRESSION
  13. BIOTIN [Concomitant]
     Indication: HAIR DISORDER
  14. FISH OIL [Concomitant]
     Indication: EYE DISORDER
  15. EYE CAPS [Concomitant]
     Indication: EYE DISORDER
  16. BABY ASPIRIN [Concomitant]
     Indication: ROUTINE HEALTH MAINTENANCE
  17. MELATONIN [Concomitant]
     Indication: INSOMNIA
  18. UNKNOWN MEDICATION [Concomitant]
     Indication: HYPERTENSION
  19. UNKNOWN MEDICATION [Concomitant]
     Indication: BLOOD CHOLESTEROL INCREASED

REACTIONS (4)
  - Lacrimation increased [Not Recovered/Not Resolved]
  - Eye swelling [Not Recovered/Not Resolved]
  - Eye inflammation [Not Recovered/Not Resolved]
  - Eye infection [Not Recovered/Not Resolved]
